FAERS Safety Report 21385123 (Version 3)
Quarter: 2023Q1

REPORT INFORMATION
  Report Type: Spontaneous
  Country: TR (occurrence: TR)
  Receive Date: 20220928
  Receipt Date: 20230320
  Transmission Date: 20230418
  Serious: Yes (Other)
  Sender: FDA-Public Use
  Company Number: TR-UCBSA-2022056715

PATIENT
  Sex: Female

DRUGS (4)
  1. CIMZIA [Suspect]
     Active Substance: CERTOLIZUMAB PEGOL
     Indication: Sacroiliitis
     Dosage: 200 MILLIGRAM, EV 2 WEEKS(QOW)
  2. ANAKINRA [Concomitant]
     Active Substance: ANAKINRA
     Indication: Sacroiliitis
     Dosage: 200 MILLIGRAM/DAY
  3. COLCHICINE [Concomitant]
     Active Substance: COLCHICINE
     Indication: Familial mediterranean fever
     Dosage: 3 GRAM, ONCE DAILY (QD)
  4. COLCHICINE [Concomitant]
     Active Substance: COLCHICINE
     Dosage: 2 GRAM, ONCE DAILY (QD)

REACTIONS (2)
  - Paradoxical psoriasis [Unknown]
  - Product use in unapproved indication [Unknown]
